FAERS Safety Report 21959250 (Version 1)
Quarter: 2023Q1

REPORT INFORMATION
  Report Type: Spontaneous
  Country: US (occurrence: US)
  Receive Date: 20230206
  Receipt Date: 20230206
  Transmission Date: 20230418
  Serious: Yes (Hospitalization, Other)
  Sender: FDA-Public Use
  Company Number: US-BRISTOL-MYERS SQUIBB COMPANY-2023-016445

PATIENT
  Age: 80 Year
  Sex: Female
  Weight: 65.77 kg

DRUGS (13)
  1. REVLIMID [Suspect]
     Active Substance: LENALIDOMIDE
     Indication: Plasma cell myeloma
     Dosage: FREQ : 21 CAPSULES - 1 BY MOUTH DAYS 1 THROUGH 21, 7 DAYS OFF
     Route: 048
  2. MORPHINE SULFATE [Concomitant]
     Active Substance: MORPHINE SULFATE
     Dosage: MORPHINE SULFATE 50MG ER TABLET - EXTENDED RELEASE
  3. ONDANSETRON [Concomitant]
     Active Substance: ONDANSETRON
     Dosage: UNDER THE TONGUE 8MG TABLET
     Route: 048
  4. MAGNESIUM [Concomitant]
     Active Substance: MAGNESIUM
  5. CARVEDILOL [Concomitant]
     Active Substance: CARVEDILOL
  6. VALACYCLOVIR HYDROCHLORIDE [Concomitant]
     Active Substance: VALACYCLOVIR HYDROCHLORIDE
  7. LEVEMIR [Concomitant]
     Active Substance: INSULIN DETEMIR
     Dosage: INSULIN - LEVEMIR FLEX TOUCH PEN INSULIN
  8. MIRTAZAPINE [Concomitant]
     Active Substance: MIRTAZAPINE
  9. JARDIANCE [Concomitant]
     Active Substance: EMPAGLIFLOZIN
  10. ATORVASTATIN [Concomitant]
     Active Substance: ATORVASTATIN
  11. LOSARTAN [Concomitant]
     Active Substance: LOSARTAN
  12. METFORMIN [Concomitant]
     Active Substance: METFORMIN HYDROCHLORIDE
  13. FAMOTIDINE [Concomitant]
     Active Substance: FAMOTIDINE

REACTIONS (4)
  - Blood glucose decreased [Unknown]
  - Gait disturbance [Unknown]
  - Cerebral artery embolism [Unknown]
  - Cerebrovascular accident [Unknown]
